FAERS Safety Report 7570513-2 (Version None)
Quarter: 2011Q2

REPORT INFORMATION
  Report Type: 
  Country: None (occurrence: None)
  Receive Date: 20110624
  Receipt Date: 20110323
  Transmission Date: 20111010
  Serious: No
  Sender: FDA-Public Use
  Company Number: US-ALLERGAN-1104124US

PATIENT
  Age: 67 Year
  Sex: Female

DRUGS (2)
  1. UNSPECIFIED DROPS FOR DRY EYES [Concomitant]
  2. LATISSE [Suspect]
     Indication: MADAROSIS
     Dosage: UNK
     Dates: start: 20110301

REACTIONS (3)
  - OCULAR HYPERAEMIA [None]
  - DRUG ADMINISTERED AT INAPPROPRIATE SITE [None]
  - EXPIRED DRUG ADMINISTERED [None]
